FAERS Safety Report 4563486-8 (Version None)
Quarter: 2005Q1

REPORT INFORMATION
  Report Type: 
  Country: None (occurrence: None)
  Receive Date: 20050121
  Receipt Date: 20050105
  Transmission Date: 20050727
  Serious: Yes (Hospitalization)
  Sender: FDA-Public Use
  Company Number: A02200500037

PATIENT
  Age: 29 Year
  Sex: Female

DRUGS (3)
  1. PLAQUENIL [Suspect]
     Indication: SYSTEMIC LUPUS ERYTHEMATOSUS
     Dosage: 200 MG BID
     Route: 048
     Dates: start: 20041201, end: 20041209
  2. PREDNISONE TAB [Suspect]
     Dosage: 5 MG OD
     Route: 048
     Dates: start: 20040815, end: 20041206
  3. IMOCUR                                     (MULTIPLE BACTERIAL FRACTIO [Concomitant]

REACTIONS (11)
  - ABDOMINAL PAIN [None]
  - BACTERIAL INFECTION [None]
  - CYTOMEGALOVIRUS TEST POSITIVE [None]
  - DIARRHOEA [None]
  - ERYTHEMA [None]
  - EXANTHEM [None]
  - HYPERTHERMIA [None]
  - LYMPHOPENIA [None]
  - RASH MACULAR [None]
  - RASH PRURITIC [None]
  - URTICARIA [None]
